FAERS Safety Report 8761122 (Version 1)
Quarter: 2012Q4

REPORT INFORMATION
  Report Type: Report from Study
  Country: AT (occurrence: AT)
  Receive Date: 20120830
  Receipt Date: 20120830
  Transmission Date: 20130627
  Serious: Yes (Other)
  Sender: FDA-Public Use
  Company Number: AT-ASTRAZENECA-2012SE60484

PATIENT
  Age: 77 Year
  Sex: Female
  Weight: 53 kg

DRUGS (6)
  1. AZD6140 [Suspect]
     Indication: ACUTE MYOCARDIAL INFARCTION
     Dosage: LOADING DOSE
     Route: 048
     Dates: start: 20120820, end: 20120820
  2. AZD6140 [Suspect]
     Indication: ACUTE MYOCARDIAL INFARCTION
     Route: 048
     Dates: start: 20120821, end: 20120821
  3. UNSPECIFIED INGREDIENT [Suspect]
     Indication: ACUTE MYOCARDIAL INFARCTION
     Route: 065
  4. NORVASC [Concomitant]
     Dates: start: 2009, end: 20120820
  5. ISOMONET RETARD [Concomitant]
     Dates: start: 2010
  6. THYREX [Concomitant]
     Dates: start: 2009

REACTIONS (5)
  - Atrioventricular block complete [Not Recovered/Not Resolved]
  - Atrioventricular block first degree [None]
  - Atrioventricular block second degree [None]
  - Rhinitis [None]
  - Mitral valve incompetence [None]
